FAERS Safety Report 24367112 (Version 1)
Quarter: 2024Q3

REPORT INFORMATION
  Report Type: Spontaneous
  Country: US (occurrence: US)
  Receive Date: 20240926
  Receipt Date: 20240926
  Transmission Date: 20241016
  Serious: Yes (Death, Other)
  Sender: BIOVITRUM
  Company Number: US-BIOVITRUM-2024-US-012437

PATIENT
  Age: 59 Year
  Sex: Male

DRUGS (3)
  1. ANAKINRA [Suspect]
     Active Substance: ANAKINRA
     Indication: Respiratory syncytial virus infection
     Dosage: DAILY
  2. ANAKINRA [Suspect]
     Active Substance: ANAKINRA
     Indication: Haemophagocytic lymphohistiocytosis
  3. ANAKINRA [Suspect]
     Active Substance: ANAKINRA
     Indication: Plasma cell myeloma

REACTIONS (4)
  - Off label use [Unknown]
  - Septic shock [Fatal]
  - Escherichia infection [Fatal]
  - Enterococcal bacteraemia [Fatal]
